FAERS Safety Report 5048499-4 (Version None)
Quarter: 2006Q3

REPORT INFORMATION
  Report Type: 
  Country: None (occurrence: None)
  Receive Date: 20060705
  Receipt Date: 20060628
  Transmission Date: 20061208
  Serious: Yes (Hospitalization)
  Sender: FDA-Public Use
  Company Number: APP200600158

PATIENT
  Age: 30 Year
  Sex: Female

DRUGS (4)
  1. CHORIONIC GONADORTOPIN INJ [Suspect]
     Indication: INFERTILITY FEMALE
     Dosage: (5000 IU, ONCE), INJECTION
  2. DECAPEPTYL (GONADORELIN) [Concomitant]
  3. PUREGON (FOLLITROPIN ALFA) [Concomitant]
  4. PROGESTERONE [Concomitant]

REACTIONS (8)
  - ABORTION INDUCED [None]
  - AMAUROSIS [None]
  - ANXIETY [None]
  - MULTIPLE PREGNANCY [None]
  - NUCLEAR MAGNETIC RESONANCE IMAGING BRAIN ABNORMAL [None]
  - SUPERIOR SAGITTAL SINUS THROMBOSIS [None]
  - VENOUS THROMBOSIS [None]
  - VOMITING [None]
